FAERS Safety Report 18642739 (Version 1)
Quarter: 2020Q4

REPORT INFORMATION
  Report Type: Report from Study
  Country: None (occurrence: IL)
  Receive Date: 20201221
  Receipt Date: 20201221
  Transmission Date: 20210114
  Serious: Yes (Death)
  Sender: FDA-Public Use
  Company Number: IL-ABBVIE-20K-082-3701292-00

PATIENT
  Sex: Male

DRUGS (2)
  1. DUODOPA [Suspect]
     Active Substance: CARBIDOPA\LEVODOPA
     Indication: PARKINSON^S DISEASE
     Dosage: MORNING DOSAGE(ML) 6 CONTINUOUS DOSAGE (ML/H) 1.8 EXTRA DOSAGE (ML) 1.5
     Route: 050
     Dates: start: 20130409
  2. DUODOPA [Suspect]
     Active Substance: CARBIDOPA\LEVODOPA
     Dosage: MORNING DOSAGE(ML) 5 CONTINUOUS DOSAGE (ML/H) 1.7 EXTRA DOSAGE (ML) 1
     Route: 050
     Dates: end: 20201217

REACTIONS (8)
  - Asthenia [Unknown]
  - Fatigue [Unknown]
  - Dysphagia [Unknown]
  - Death [Fatal]
  - Productive cough [Unknown]
  - Hypotension [Unknown]
  - Oxygen saturation decreased [Unknown]
  - Malaise [Unknown]
